FAERS Safety Report 9935652 (Version 1)
Quarter: 2014Q1

REPORT INFORMATION
  Report Type: Spontaneous
  Country: ES (occurrence: ES)
  Receive Date: 20140228
  Receipt Date: 20140228
  Transmission Date: 20141002
  Serious: Yes (Death, Other)
  Sender: FDA-Public Use
  Company Number: ES-GILEAD-2014-0095269

PATIENT
  Age: 24 Year
  Sex: Female
  Weight: 70 kg

DRUGS (19)
  1. VISTIDE [Suspect]
     Indication: PNEUMONIA ADENOVIRAL
     Dosage: 175 MG, Q1WK
  2. VISTIDE [Suspect]
     Dosage: 175 MG, Q2WK
  3. AMBISOME [Suspect]
     Indication: EVIDENCE BASED TREATMENT
     Dosage: 300 MG, QD
     Route: 042
  4. CEFTRIAXONE [Concomitant]
     Indication: EVIDENCE BASED TREATMENT
     Dosage: 2 G, QD
     Route: 042
  5. LEVOFLOXACIN [Concomitant]
     Indication: EVIDENCE BASED TREATMENT
     Dosage: 500 MG, BID
     Route: 042
  6. LEVOFLOXACIN [Concomitant]
     Dosage: 500 MG, QD
     Route: 042
  7. LEVOFLOXACIN [Concomitant]
     Dosage: 240 MG, QOD
     Route: 042
  8. LEVOFLOXACIN [Concomitant]
     Dosage: 250 MG, QD
     Route: 042
  9. OXYGEN [Concomitant]
     Indication: EVIDENCE BASED TREATMENT
  10. MEROPENEM [Concomitant]
     Indication: PNEUMONIA ADENOVIRAL
     Dosage: 1 G, QID
     Route: 042
  11. MEROPENEM [Concomitant]
     Dosage: 1 G, BID
     Route: 042
  12. MEROPENEM [Concomitant]
     Dosage: 500 MG, TID
     Route: 042
  13. LINEZOLID [Concomitant]
     Indication: EVIDENCE BASED TREATMENT
     Dosage: 600 MG, BID
     Route: 042
  14. ACICLOVIR [Concomitant]
     Indication: PNEUMONIA ADENOVIRAL
     Dosage: 750 MG, TID
     Route: 042
  15. DOXYCYCLINE [Concomitant]
     Indication: EVIDENCE BASED TREATMENT
     Dosage: 100 MG, BID
     Route: 042
  16. METHYLPREDNISOLONE [Concomitant]
     Indication: EVIDENCE BASED TREATMENT
     Dosage: 60 MG, TID
     Route: 042
  17. GANCICLOVIR [Concomitant]
     Indication: PNEUMONIA ADENOVIRAL
     Dosage: 200 MG, QD
     Route: 042
  18. PROBENECID [Concomitant]
     Indication: PROPHYLAXIS
  19. VANCOMYCIN [Concomitant]
     Indication: STAPHYLOCOCCAL INFECTION
     Dosage: 1 G, QD

REACTIONS (2)
  - Drug ineffective [Fatal]
  - Renal failure [Unknown]
